FAERS Safety Report 9203623 (Version 3)
Quarter: 2013Q2

REPORT INFORMATION
  Report Type: Spontaneous
  Country: NL (occurrence: NL)
  Receive Date: 20130402
  Receipt Date: 20130425
  Transmission Date: 20140414
  Serious: Yes (Hospitalization)
  Sender: FDA-Public Use
  Company Number: PHHY2013NL031252

PATIENT
  Sex: Female
  Weight: 62 kg

DRUGS (5)
  1. AFINITOR [Suspect]
     Dosage: 10 MG, QD
     Route: 048
     Dates: start: 20130321
  2. CALCIUM CARBONATE W/COLECALCIFEROL [Concomitant]
     Dosage: 1000 MG/800 IU, QD
     Route: 048
  3. ACETYLSALICYLIC ACID [Concomitant]
     Dosage: 80 MG, QD
     Route: 048
  4. DISOPYRAMIDE [Concomitant]
     Dosage: 100 MG, TID
     Route: 048
  5. EXEMESTANE [Concomitant]
     Dosage: 25 MG, QD
     Route: 048

REACTIONS (5)
  - Breast pain [Unknown]
  - Musculoskeletal pain [Unknown]
  - Heart rate increased [Unknown]
  - Chest discomfort [Unknown]
  - Chest pain [Unknown]
